FAERS Safety Report 6733867-2 (Version None)
Quarter: 2010Q2

REPORT INFORMATION
  Report Type: 
  Country: None (occurrence: None)
  Receive Date: 20100520
  Receipt Date: 20100513
  Transmission Date: 20101027
  Serious: Yes (Life-Threatening)
  Sender: FDA-Public Use
  Company Number: JP-JNJFOC-20091200124

PATIENT
  Sex: Male

DRUGS (9)
  1. DORIPENEM MONOHYDRATE [Suspect]
     Indication: PNEUMONIA ASPIRATION
     Dosage: 0.25 G X3
     Route: 041
  2. VANCOMYCIN [Suspect]
     Indication: PNEUMONIA STAPHYLOCOCCAL
     Route: 041
  3. VANCOMYCIN [Suspect]
     Route: 041
  4. VANCOMYCIN [Suspect]
     Indication: BRAIN CONTUSION
     Route: 041
  5. VANCOMYCIN [Suspect]
     Route: 041
  6. VANCOMYCIN [Suspect]
     Indication: PNEUMONIA ASPIRATION
     Route: 041
  7. VANCOMYCIN [Suspect]
     Route: 041
  8. ZOSYN [Concomitant]
     Indication: BRAIN CONTUSION
     Route: 041
  9. ZOSYN [Concomitant]
     Indication: PNEUMONIA ASPIRATION
     Route: 041

REACTIONS (1)
  - RENAL FAILURE ACUTE [None]
